FAERS Safety Report 8911201 (Version 1)
Quarter: 2012Q4

REPORT INFORMATION
  Report Type: 
  Country: JP (occurrence: JP)
  Receive Date: 20121115
  Receipt Date: 20121115
  Transmission Date: 20130627
  Serious: Yes (Other)
  Sender: FDA-Public Use
  Company Number: JP-AMGEN-JPNSP2012072446

PATIENT
  Age: 16 Year
  Sex: Female

DRUGS (2)
  1. ENBREL [Suspect]
     Indication: JUVENILE ARTHRITIS
     Dosage: UNK, UNK, 2 twice weekly
     Route: 058
     Dates: start: 2011, end: 2011
  2. PREDNISOLONE [Concomitant]
     Dosage: 6 mg, qd

REACTIONS (2)
  - Cataract [Recovering/Resolving]
  - Uveitis [Recovering/Resolving]
